FAERS Safety Report 7235995-4 (Version None)
Quarter: 2011Q1

REPORT INFORMATION
  Report Type: 
  Country: None (occurrence: None)
  Receive Date: 20110120
  Receipt Date: 20110117
  Transmission Date: 20110831
  Serious: Yes (Hospitalization)
  Sender: FDA-Public Use
  Company Number: B0694568A

PATIENT
  Sex: Female

DRUGS (1)
  1. NABUMETONE [Suspect]
     Dosage: 500MG PER DAY
     Route: 048
     Dates: start: 20100921, end: 20100921

REACTIONS (8)
  - FACE OEDEMA [None]
  - DYSPNOEA [None]
  - MALAISE [None]
  - ERYTHEMA [None]
  - ANAPHYLACTOID REACTION [None]
  - PRURITUS GENERALISED [None]
  - VOMITING [None]
  - LOSS OF CONSCIOUSNESS [None]
